FAERS Safety Report 8234084-X (Version None)
Quarter: 2012Q1

REPORT INFORMATION
  Report Type: 
  Country: None (occurrence: None)
  Receive Date: 20120326
  Receipt Date: 20120326
  Transmission Date: 20120608
  Serious: Yes (Disabling)
  Sender: FDA-Public Use
  Company Number: None

PATIENT
  Sex: Female
  Weight: 48.534 kg

DRUGS (2)
  1. ALENDRONATE SODIUM [Concomitant]
  2. FOSAMAX [Suspect]
     Indication: OSTEOPOROSIS
     Dosage: 70 MG
     Route: 048

REACTIONS (3)
  - BONE PAIN [None]
  - GAIT DISTURBANCE [None]
  - FEMUR FRACTURE [None]
